FAERS Safety Report 7836128-3 (Version None)
Quarter: 2011Q4

REPORT INFORMATION
  Report Type: 
  Country: None (occurrence: None)
  Receive Date: 20111024
  Receipt Date: 20110728
  Transmission Date: 20120403
  Serious: No
  Sender: FDA-Public Use
  Company Number: US-B.I. PHARMACEUTICALS,INC./RIDGEFIELD-2011-BP-08641BP

PATIENT
  Sex: Male

DRUGS (9)
  1. PRADAXA [Suspect]
     Indication: ATRIAL FIBRILLATION
     Dosage: 300 MG
     Route: 048
     Dates: start: 20101201
  2. MULTI-VITAMIN [Concomitant]
     Indication: SUPPLEMENTATION THERAPY
  3. RAMIPRIL [Concomitant]
     Indication: HYPERTENSION
     Dosage: 10 MG
  4. MAGNESIUM OXIDE [Concomitant]
     Indication: SUPPLEMENTATION THERAPY
  5. LIPITOR [Concomitant]
     Indication: BLOOD CHOLESTEROL INCREASED
     Dosage: 10 MG
  6. MULTAQ [Concomitant]
     Indication: ATRIAL FIBRILLATION
     Dosage: 400 MG
  7. DILTIAZEM HCL [Concomitant]
     Indication: CARDIAC DISORDER
     Dosage: 240 MG
  8. AVODART [Concomitant]
     Indication: PROSTATOMEGALY
     Dosage: 0.5 MG
  9. TAMSULOSIN HCL [Concomitant]
     Indication: PROSTATOMEGALY
     Dosage: 0.4 MG

REACTIONS (3)
  - BLOOD URINE PRESENT [None]
  - INGUINAL HERNIA REPAIR [None]
  - URINARY RETENTION POSTOPERATIVE [None]
